FAERS Safety Report 19193481 (Version 1)
Quarter: 2021Q2

REPORT INFORMATION
  Report Type: Spontaneous
  Country: JP (occurrence: JP)
  Receive Date: 20210428
  Receipt Date: 20210428
  Transmission Date: 20210717
  Serious: Yes (Hospitalization)
  Sender: FDA-Public Use
  Company Number: JP-JNJFOC-20210442698

PATIENT
  Sex: Male

DRUGS (3)
  1. LANIRAPID [Suspect]
     Active Substance: METILDIGOXIN
     Dosage: DOSE UNKNOWN
     Route: 048
  2. ERLEADA [Suspect]
     Active Substance: APALUTAMIDE
     Indication: PRODUCT USED FOR UNKNOWN INDICATION
     Dosage: DOSE UNKNOWN
     Route: 048
  3. ELIQUIS [Concomitant]
     Active Substance: APIXABAN
     Dosage: DOSE UNKNOWN
     Route: 065

REACTIONS (2)
  - Cardioactive drug level increased [Unknown]
  - Hospitalisation [Unknown]
